FAERS Safety Report 25081142 (Version 1)
Quarter: 2025Q1

REPORT INFORMATION
  Report Type: Spontaneous
  Country: FR (occurrence: FR)
  Receive Date: 20250315
  Receipt Date: 20250315
  Transmission Date: 20250409
  Serious: Yes (Other)
  Sender: JOHNSON AND JOHNSON
  Company Number: FR-JNJFOC-20250324089

PATIENT
  Age: 66 Year
  Sex: Male
  Weight: 83 kg

DRUGS (4)
  1. ERLEADA [Suspect]
     Active Substance: APALUTAMIDE
     Indication: Prostate cancer
     Route: 048
     Dates: start: 20240122, end: 20240721
  2. TRIPTORELIN [Suspect]
     Active Substance: TRIPTORELIN
     Indication: Product used for unknown indication
     Route: 058
     Dates: start: 20231219, end: 20240604
  3. DESLORATADINE\PSEUDOEPHEDRINE SULFATE [Concomitant]
     Active Substance: DESLORATADINE\PSEUDOEPHEDRINE SULFATE
     Indication: Rash
     Route: 048
     Dates: start: 20240702
  4. DEXERYL [CHLORPHENAMINE MALEATE;DEXTROMETHORPHAN HYDROBROMIDE;GUAIFENE [Concomitant]
     Indication: Rash
     Route: 061
     Dates: start: 20240722

REACTIONS (1)
  - Basal cell carcinoma [Recovered/Resolved]

NARRATIVE: CASE EVENT DATE: 20240722
